FAERS Safety Report 19356261 (Version 1)
Quarter: 2021Q2

REPORT INFORMATION
  Report Type: Spontaneous
  Country: CA (occurrence: CA)
  Receive Date: 20210601
  Receipt Date: 20210601
  Transmission Date: 20210717
  Serious: Yes (Other)
  Sender: FDA-Public Use
  Company Number: CA-SUN PHARMACEUTICAL INDUSTRIES LTD-2021R1-298525

PATIENT
  Sex: Male

DRUGS (3)
  1. PHENYTOIN. [Suspect]
     Active Substance: PHENYTOIN
     Dosage: UNK (100 MG IV EVERY 8 HOURS ON DAY 2)
     Route: 042
  2. PHENYTOIN. [Suspect]
     Active Substance: PHENYTOIN
     Dosage: UNK (MAINTENANCE DOSE , 300 MILLIGRAM, EVERY 24 HOURS WAS INITIATED)
     Route: 042
  3. PHENYTOIN. [Suspect]
     Active Substance: PHENYTOIN
     Indication: SEIZURE
     Dosage: UNK (LOADING DOSE OF 900 MG OVER 60 MINUTES (WEIGHT EQUALS 56 KG)
     Route: 042

REACTIONS (1)
  - Cardiac disorder [Recovering/Resolving]
